FAERS Safety Report 25152787 (Version 1)
Quarter: 2025Q2

REPORT INFORMATION
  Report Type: Spontaneous
  Country: US (occurrence: US)
  Receive Date: 20250403
  Receipt Date: 20250403
  Transmission Date: 20250717
  Serious: Yes (Other)
  Sender: AUROBINDO
  Company Number: US-AUROBINDO-AUR-APL-2025-016673

PATIENT
  Age: 8 Year
  Sex: Male

DRUGS (8)
  1. LATANOPROST [Suspect]
     Active Substance: LATANOPROST
     Indication: Glaucoma
     Route: 061
  2. TIMOLOL MALEATE [Suspect]
     Active Substance: TIMOLOL MALEATE
     Indication: Glaucoma
     Dosage: UNK UNK, TWO TIMES A DAY
     Route: 065
  3. ACETAZOLAMIDE [Suspect]
     Active Substance: ACETAZOLAMIDE
     Indication: Glaucoma
     Dosage: 5 MILLIGRAM/KILOGRAM, 3 TIMES A DAY
     Route: 048
  4. MANNITOL [Suspect]
     Active Substance: MANNITOL
     Indication: Glaucoma
     Route: 042
  5. BEVACIZUMAB [Suspect]
     Active Substance: BEVACIZUMAB
     Indication: Glaucoma
  6. ATROPINE [Suspect]
     Active Substance: ATROPINE
     Indication: Glaucoma
     Dosage: UNK UNK, 3 TIMES A DAY
     Route: 061
  7. IOPIDINE [Suspect]
     Active Substance: APRACLONIDINE HYDROCHLORIDE
     Indication: Glaucoma
     Dosage: UNK UNK, 3 TIMES A DAY
     Route: 065
  8. ACYCLOVIR [Concomitant]
     Active Substance: ACYCLOVIR
     Indication: Glaucoma
     Route: 042

REACTIONS (1)
  - Drug ineffective [Unknown]
